FAERS Safety Report 16114159 (Version 1)
Quarter: 2019Q1

REPORT INFORMATION
  Report Type: Spontaneous
  Country: IT (occurrence: IT)
  Receive Date: 20190325
  Receipt Date: 20190325
  Transmission Date: 20190418
  Serious: Yes (Other)
  Sender: FDA-Public Use
  Company Number: IT-TEVA-2019-IT-1028098

PATIENT
  Age: 23 Year
  Sex: Female
  Weight: 72 kg

DRUGS (4)
  1. VINBLASTINE SULFATE. [Suspect]
     Active Substance: VINBLASTINE SULFATE
     Indication: HODGKIN^S DISEASE
     Dosage: CONCENTRATE FOR SOLUTION FOR INJECTION/INFUSION
     Route: 042
     Dates: end: 20190223
  2. BLEOMYCIN SULFATE [Suspect]
     Active Substance: BLEOMYCIN SULFATE
     Indication: HODGKIN^S DISEASE
     Route: 042
     Dates: end: 20190223
  3. DOXORUBICIN HYDROCHLORIDE. [Suspect]
     Active Substance: DOXORUBICIN HYDROCHLORIDE
     Indication: HODGKIN^S DISEASE
     Dosage: CONCENTRATE AND SOLVENT FOR SOLUTION FOR INJECTION/INFUSION
     Route: 042
     Dates: end: 20190223
  4. DACARBAZINE. [Suspect]
     Active Substance: DACARBAZINE
     Indication: HODGKIN^S DISEASE
     Dosage: CONCENTRATE FOR SOLUTION FOR INJECTION/INFUSION
     Route: 042
     Dates: end: 20190223

REACTIONS (1)
  - Neutropenia [Unknown]

NARRATIVE: CASE EVENT DATE: 20190307
